FAERS Safety Report 5093059-2 (Version None)
Quarter: 2006Q3

REPORT INFORMATION
  Report Type: 
  Country: None (occurrence: None)
  Receive Date: 20060828
  Receipt Date: 20060814
  Transmission Date: 20061208
  Serious: Yes (Life-Threatening, Hospitalization, Other)
  Sender: FDA-Public Use
  Company Number: 2006AP000613

PATIENT
  Age: 41 Year
  Sex: Female

DRUGS (1)
  1. LITHIUM CARBONATE CAP [Suspect]
     Indication: DEPRESSION

REACTIONS (11)
  - ABDOMINAL TENDERNESS [None]
  - ALANINE AMINOTRANSFERASE INCREASED [None]
  - ASPARTATE AMINOTRANSFERASE INCREASED [None]
  - DRUG HYPERSENSITIVITY [None]
  - LYMPHADENOPATHY [None]
  - ORAL SOFT TISSUE DISORDER [None]
  - PAIN [None]
  - PHARYNGITIS [None]
  - PRURITUS [None]
  - TENDERNESS [None]
  - WHITE BLOOD CELLS URINE POSITIVE [None]
